FAERS Safety Report 19239953 (Version 1)
Quarter: 2021Q2

REPORT INFORMATION
  Report Type: Report from Study
  Country: US (occurrence: US)
  Receive Date: 20210511
  Receipt Date: 20210511
  Transmission Date: 20210717
  Serious: Yes (Death, Hospitalization, Other)
  Sender: FDA-Public Use
  Company Number: US-BRISTOL-MYERS SQUIBB COMPANY-BMS-2021-043475

PATIENT
  Age: 75 Year
  Sex: Male
  Weight: 126.98 kg

DRUGS (1)
  1. APIXABAN [Suspect]
     Active Substance: APIXABAN
     Indication: EMBOLISM VENOUS
     Dosage: UNK
     Route: 065
     Dates: start: 201709

REACTIONS (5)
  - Myocardial infarction [Fatal]
  - Epistaxis [Fatal]
  - Gastrointestinal haemorrhage [Unknown]
  - Sepsis [Unknown]
  - Intentional product use issue [Unknown]

NARRATIVE: CASE EVENT DATE: 201906
